FAERS Safety Report 4293168-1 (Version None)
Quarter: 2004Q1

REPORT INFORMATION
  Report Type: 
  Country: None (occurrence: None)
  Receive Date: 20040212
  Receipt Date: 20030617
  Transmission Date: 20041129
  Serious: No
  Sender: FDA-Public Use
  Company Number: US-GLAXOSMITHKLINE-A0412945A

PATIENT
  Age: 42 Year
  Sex: Female

DRUGS (2)
  1. PAXIL [Suspect]
     Indication: ANXIETY
     Dates: start: 20010101, end: 20020101
  2. PAXIL CR [Suspect]
     Indication: ANXIETY
     Route: 048
     Dates: start: 20020101

REACTIONS (8)
  - ANXIETY [None]
  - BACK PAIN [None]
  - HYPERHIDROSIS [None]
  - INSOMNIA [None]
  - LAZINESS [None]
  - LOSS OF LIBIDO [None]
  - MOOD ALTERED [None]
  - TREMOR [None]
